FAERS Safety Report 24916308 (Version 1)
Quarter: 2025Q1

REPORT INFORMATION
  Report Type: Other
  Country: CA (occurrence: CA)
  Receive Date: 20250203
  Receipt Date: 20250203
  Transmission Date: 20250409
  Serious: Yes (Hospitalization, Other)
  Sender: LUPIN
  Company Number: CA-LUPIN HEALTHCARE (UK) LIMITED-2025-00751

PATIENT
  Age: 45 Year
  Sex: Female
  Weight: 95 kg

DRUGS (33)
  1. TIOTROPIUM [Suspect]
     Active Substance: TIOTROPIUM
     Indication: Product used for unknown indication
     Route: 065
  2. ASPIRIN [Suspect]
     Active Substance: ASPIRIN
     Indication: Product used for unknown indication
     Route: 065
  3. ASCORBIC ACID [Suspect]
     Active Substance: ASCORBIC ACID
     Indication: Product used for unknown indication
     Route: 065
  4. ASPIRIN [Suspect]
     Active Substance: ASPIRIN
     Indication: Product used for unknown indication
     Route: 065
  5. ATORVASTATIN CALCIUM [Suspect]
     Active Substance: ATORVASTATIN CALCIUM
     Indication: Product used for unknown indication
     Route: 065
  6. FLUTICASONE FUROATE [Suspect]
     Active Substance: FLUTICASONE FUROATE
     Indication: Product used for unknown indication
     Route: 065
  7. FLUTICASONE FUROATE [Suspect]
     Active Substance: FLUTICASONE FUROATE
     Dosage: 3 DOSAGE FORM, QD
     Route: 065
  8. BUDESONIDE [Suspect]
     Active Substance: BUDESONIDE
     Indication: Product used for unknown indication
     Dosage: 2 DOSAGE FORM, QD
  9. BUDESONIDE [Suspect]
     Active Substance: BUDESONIDE
     Dosage: 2 DOSAGE FORM, QD
     Route: 065
  10. BUDESONIDE [Suspect]
     Active Substance: BUDESONIDE
     Route: 065
  11. BUDESONIDE\FORMOTEROL FUMARATE [Suspect]
     Active Substance: BUDESONIDE\FORMOTEROL FUMARATE
     Indication: Product used for unknown indication
     Dosage: 2 DOSAGE FORM, QD
  12. BUDESONIDE\FORMOTEROL FUMARATE [Suspect]
     Active Substance: BUDESONIDE\FORMOTEROL FUMARATE
  13. BUDESONIDE\FORMOTEROL FUMARATE [Suspect]
     Active Substance: BUDESONIDE\FORMOTEROL FUMARATE
     Route: 065
  14. CALCIUM CARBONATE [Suspect]
     Active Substance: CALCIUM CARBONATE
     Indication: Product used for unknown indication
     Route: 065
  15. CHOLECALCIFEROL [Suspect]
     Active Substance: CHOLECALCIFEROL
     Indication: Product used for unknown indication
     Route: 065
  16. LEVOTHYROXINE [Suspect]
     Active Substance: LEVOTHYROXINE
     Indication: Product used for unknown indication
     Route: 065
  17. ERGOCALCIFEROL [Suspect]
     Active Substance: ERGOCALCIFEROL
     Indication: Product used for unknown indication
     Route: 065
  18. FOLIC ACID [Suspect]
     Active Substance: FOLIC ACID
     Indication: Product used for unknown indication
     Route: 065
  19. DEXTROSE [Suspect]
     Active Substance: DEXTROSE MONOHYDRATE
     Indication: Product used for unknown indication
     Route: 065
  20. DEXTROSE [Suspect]
     Active Substance: DEXTROSE MONOHYDRATE
     Route: 065
  21. HUMALOG [Suspect]
     Active Substance: INSULIN LISPRO
     Indication: Product used for unknown indication
     Route: 065
  22. FERROUS SULFATE ANHYDROUS [Suspect]
     Active Substance: FERROUS SULFATE ANHYDROUS
     Indication: Product used for unknown indication
     Route: 065
  23. LEVOTHYROXINE SODIUM [Suspect]
     Active Substance: LEVOTHYROXINE SODIUM
     Indication: Product used for unknown indication
     Route: 065
  24. PANTOPRAZOLE SODIUM [Suspect]
     Active Substance: PANTOPRAZOLE SODIUM
     Indication: Product used for unknown indication
     Dosage: 1 DOSAGE FORM, QD
     Route: 048
  25. PANTOPRAZOLE SODIUM [Suspect]
     Active Substance: PANTOPRAZOLE SODIUM
     Route: 048
  26. ALBUTEROL [Suspect]
     Active Substance: ALBUTEROL
     Indication: Asthma
     Dosage: UNK, QD (1 EVERY 1 DAYS)
  27. ALBUTEROL [Suspect]
     Active Substance: ALBUTEROL
     Dosage: 3 DOSAGE FORM, QD
  28. ALBUTEROL [Suspect]
     Active Substance: ALBUTEROL
  29. SINGULAIR [Suspect]
     Active Substance: MONTELUKAST SODIUM
     Indication: Product used for unknown indication
     Dosage: UNK UNK, QD (1 EVERY 1 DAYS)
     Route: 048
  30. SPIRIVA [Suspect]
     Active Substance: TIOTROPIUM BROMIDE MONOHYDRATE
     Indication: Product used for unknown indication
     Route: 065
  31. SYMBICORT [Suspect]
     Active Substance: BUDESONIDE\FORMOTEROL FUMARATE DIHYDRATE
     Indication: Product used for unknown indication
  32. SYMBICORT [Suspect]
     Active Substance: BUDESONIDE\FORMOTEROL FUMARATE DIHYDRATE
  33. VITAMIN C [Suspect]
     Active Substance: ASCORBIC ACID
     Indication: Product used for unknown indication
     Route: 065

REACTIONS (20)
  - Asthma [Unknown]
  - Chronic obstructive pulmonary disease [Unknown]
  - Dyspnoea [Unknown]
  - Dyspnoea exertional [Unknown]
  - Eczema [Unknown]
  - Full blood count abnormal [Unknown]
  - Gastrooesophageal reflux disease [Unknown]
  - Loss of personal independence in daily activities [Unknown]
  - Nasal congestion [Unknown]
  - Nasal obstruction [Unknown]
  - Obstructive airways disorder [Unknown]
  - Respiratory tract infection [Unknown]
  - Rhinorrhoea [Unknown]
  - Secretion discharge [Unknown]
  - Sinusitis [Unknown]
  - Sleep disorder due to a general medical condition [Unknown]
  - Throat clearing [Unknown]
  - Wheezing [Unknown]
  - Drug ineffective [Unknown]
  - Therapeutic product effect incomplete [Unknown]
